FAERS Safety Report 25265412 (Version 1)
Quarter: 2025Q2

REPORT INFORMATION
  Report Type: Report from Study
  Country: JP (occurrence: JP)
  Receive Date: 20250502
  Receipt Date: 20250502
  Transmission Date: 20250716
  Serious: Yes (Hospitalization)
  Sender: EISAI
  Company Number: JP-Eisai-EC-2025-188632

PATIENT
  Age: 69 Year
  Sex: Female
  Weight: 71 kg

DRUGS (21)
  1. LENVIMA [Suspect]
     Active Substance: LENVATINIB
     Indication: Endometrial cancer
     Dates: start: 20220913, end: 20221003
  2. LENVIMA [Suspect]
     Active Substance: LENVATINIB
     Dates: start: 20221009, end: 20221010
  3. LENVIMA [Suspect]
     Active Substance: LENVATINIB
     Dates: start: 20221013, end: 20221019
  4. LENVIMA [Suspect]
     Active Substance: LENVATINIB
     Dates: start: 20221108, end: 20221113
  5. LENVIMA [Suspect]
     Active Substance: LENVATINIB
     Dates: start: 20221116, end: 20221120
  6. LENVIMA [Suspect]
     Active Substance: LENVATINIB
     Dates: start: 20221130, end: 20221204
  7. LENVIMA [Suspect]
     Active Substance: LENVATINIB
     Dates: start: 20221206, end: 20221213
  8. LENVIMA [Suspect]
     Active Substance: LENVATINIB
     Dates: start: 20221216, end: 20221219
  9. LENVIMA [Suspect]
     Active Substance: LENVATINIB
     Dates: start: 20221227, end: 20221231
  10. LENVIMA [Suspect]
     Active Substance: LENVATINIB
     Dates: start: 20230103, end: 20230107
  11. LENVIMA [Suspect]
     Active Substance: LENVATINIB
     Dates: start: 20230114, end: 20230118
  12. LENVIMA [Suspect]
     Active Substance: LENVATINIB
     Dates: start: 20230220, end: 20230224
  13. LENVIMA [Suspect]
     Active Substance: LENVATINIB
     Dates: start: 20230227, end: 20230303
  14. LENVIMA [Suspect]
     Active Substance: LENVATINIB
     Dates: start: 20230305, end: 20230309
  15. LENVIMA [Suspect]
     Active Substance: LENVATINIB
     Dates: start: 20230411, end: 20230416
  16. LENVIMA [Suspect]
     Active Substance: LENVATINIB
     Dates: start: 20230425, end: 20230429
  17. LENVIMA [Suspect]
     Active Substance: LENVATINIB
     Dates: start: 20230522, end: 20230527
  18. LENVIMA [Suspect]
     Active Substance: LENVATINIB
     Dates: start: 20230530, end: 20230603
  19. KEYTRUDA [Suspect]
     Active Substance: PEMBROLIZUMAB
     Indication: Endometrial cancer
     Dates: start: 20220912, end: 20221128
  20. KEYTRUDA [Suspect]
     Active Substance: PEMBROLIZUMAB
     Dates: start: 20230110, end: 20230221
  21. KEYTRUDA [Suspect]
     Active Substance: PEMBROLIZUMAB
     Dates: start: 20230410

REACTIONS (1)
  - Decreased appetite [Recovering/Resolving]

NARRATIVE: CASE EVENT DATE: 20230613
